FAERS Safety Report 16755234 (Version 1)
Quarter: 2019Q3

REPORT INFORMATION
  Report Type: Spontaneous
  Country: US (occurrence: US)
  Receive Date: 20190829
  Receipt Date: 20190829
  Transmission Date: 20191005
  Serious: Yes (Other)
  Sender: FDA-Public Use
  Company Number: US-ACTELION-A-CH2019-194646

PATIENT
  Age: 48 Year
  Sex: Male

DRUGS (6)
  1. PROTAMINE [Concomitant]
     Active Substance: PROTAMINE
  2. EPOPROSTENOL SODIUM. [Suspect]
     Active Substance: EPOPROSTENOL SODIUM
     Indication: HEPARIN-INDUCED THROMBOCYTOPENIA
     Dosage: 15 NG/KG, PER MIN
     Route: 042
     Dates: start: 201901
  3. ARGATROBAN. [Concomitant]
     Active Substance: ARGATROBAN
  4. EPOPROSTENOL SODIUM. [Suspect]
     Active Substance: EPOPROSTENOL SODIUM
     Dosage: 30 NG/KG, PER MIN
     Route: 042
  5. FACTOR VII [Concomitant]
     Active Substance: COAGULATION FACTOR VII HUMAN
     Indication: DISSEMINATED INTRAVASCULAR COAGULATION
  6. HEPARIN [Concomitant]
     Active Substance: HEPARIN SODIUM
     Indication: VENTRICULAR ASSIST DEVICE INSERTION

REACTIONS (3)
  - Transplant evaluation [Unknown]
  - Ventricular assist device insertion [Unknown]
  - Disseminated intravascular coagulation [Recovering/Resolving]

NARRATIVE: CASE EVENT DATE: 201901
